FAERS Safety Report 7436587-4 (Version None)
Quarter: 2011Q2

REPORT INFORMATION
  Report Type: 
  Country: None (occurrence: None)
  Receive Date: 20110418
  Receipt Date: 20110407
  Transmission Date: 20111010
  Serious: Yes (Other)
  Sender: FDA-Public Use
  Company Number: FK201100691

PATIENT
  Age: 46 Year
  Sex: Female

DRUGS (1)
  1. PROPOFOL [Suspect]
     Indication: COLONOSCOPY

REACTIONS (5)
  - ANOSMIA [None]
  - HYPOGEUSIA [None]
  - RESPIRATORY DEPRESSION [None]
  - HEADACHE [None]
  - VOMITING [None]
